FAERS Safety Report 10009809 (Version 1)
Quarter: 2014Q1

REPORT INFORMATION
  Report Type: Spontaneous
  Country: US (occurrence: US)
  Receive Date: 20140312
  Receipt Date: 20140312
  Transmission Date: 20141002
  Serious: Yes (Other)
  Sender: FDA-Public Use
  Company Number: US-INCYTE CORPORATION-2013IN000204

PATIENT
  Age: 78 Year
  Sex: Male

DRUGS (11)
  1. JAKAFI [Suspect]
     Indication: MYELOFIBROSIS
     Dosage: 20 MG, BID
     Route: 048
     Dates: start: 2012
  2. ARANESP [Concomitant]
  3. LEVOTHYROXINE [Concomitant]
     Dosage: 125 MG
  4. AVODART [Concomitant]
     Dosage: 0.5 MG
  5. ALLOPURINOL [Concomitant]
     Dosage: 300 MG
  6. OMEPRAZOLE [Concomitant]
     Dosage: 200 MG
  7. CARBIDOPA/LEVODOPA [Concomitant]
     Dosage: 100 MG, QID
  8. TRAZODONE [Concomitant]
     Dosage: 50 MG
  9. AMOXICILLIN W/CLAVULANIC ACID [Concomitant]
     Dosage: 875 MG, QD
  10. PRISTIQ [Concomitant]
     Dosage: 50 MG, UNK
  11. FOLIC ACID [Concomitant]
     Dosage: UNK

REACTIONS (1)
  - Haemoglobin decreased [Unknown]
